FAERS Safety Report 14897688 (Version 1)
Quarter: 2018Q2

REPORT INFORMATION
  Report Type: Spontaneous
  Country: US (occurrence: US)
  Receive Date: 20180427
  Receipt Date: 20180427
  Transmission Date: 20180711
  Serious: Yes (Hospitalization)
  Sender: FDA-Public Use
  Company Number: None

PATIENT
  Age: 60 Year
  Sex: Female

DRUGS (1)
  1. ESBRIET [Suspect]
     Active Substance: PIRFENIDONE
     Indication: IDIOPATHIC PULMONARY FIBROSIS
     Route: 048
     Dates: start: 20170314, end: 20180427

REACTIONS (6)
  - Dyspnoea [None]
  - Disease progression [None]
  - Lung disorder [None]
  - Drug dose omission [None]
  - Abdominal pain [None]
  - Thrombosis [None]

NARRATIVE: CASE EVENT DATE: 20180426
